FAERS Safety Report 13083250 (Version 7)
Quarter: 2019Q2

REPORT INFORMATION
  Report Type: Spontaneous
  Country: CA (occurrence: CA)
  Receive Date: 20170104
  Receipt Date: 20190412
  Transmission Date: 20190711
  Serious: Yes (Other)
  Sender: FDA-Public Use
  Company Number: CA-PFIZER INC-2016502947

PATIENT
  Age: 63 Year
  Sex: Female

DRUGS (7)
  1. XELJANZ [Suspect]
     Active Substance: TOFACITINIB CITRATE
     Indication: RHEUMATOID ARTHRITIS
     Dosage: 5 MG, 2X/DAY
     Route: 048
     Dates: start: 20160913, end: 201611
  2. XELJANZ [Suspect]
     Active Substance: TOFACITINIB CITRATE
     Dosage: 5 MG, 2X/DAY
     Route: 048
     Dates: start: 201611, end: 20170214
  3. METHOTREXATE SODIUM. [Suspect]
     Active Substance: METHOTREXATE SODIUM
     Dosage: INJECTION, 10 MG WEEKLY
     Route: 058
  4. FOLIC ACID. [Concomitant]
     Active Substance: FOLIC ACID
     Dosage: UNK
  5. XELJANZ [Suspect]
     Active Substance: TOFACITINIB CITRATE
     Dosage: 5 MG, 2X/DAY
     Route: 048
  6. METHOTREXATE SODIUM. [Suspect]
     Active Substance: METHOTREXATE SODIUM
     Indication: RHEUMATOID ARTHRITIS
     Dosage: INJECTION, WEEKLY
     Dates: end: 20161214
  7. TYLENOL WITH CODEINE [Concomitant]
     Active Substance: ACETAMINOPHEN\CODEINE PHOSPHATE
     Dosage: UNK

REACTIONS (15)
  - Bronchitis [Unknown]
  - Joint injury [Unknown]
  - Loss of personal independence in daily activities [Unknown]
  - Cough [Unknown]
  - Condition aggravated [Unknown]
  - Musculoskeletal pain [Not Recovered/Not Resolved]
  - Pain in extremity [Not Recovered/Not Resolved]
  - Ear discomfort [Not Recovered/Not Resolved]
  - Polyp [Unknown]
  - Sinus headache [Not Recovered/Not Resolved]
  - Nasopharyngitis [Unknown]
  - Pyrexia [Recovered/Resolved]
  - Influenza [Unknown]
  - Product dose omission [Unknown]
  - Lower respiratory tract infection [Unknown]
